FAERS Safety Report 16849344 (Version 1)
Quarter: 2019Q3

REPORT INFORMATION
  Report Type: Spontaneous
  Country: US (occurrence: US)
  Receive Date: 20190925
  Receipt Date: 20190925
  Transmission Date: 20191005
  Serious: Yes (Hospitalization)
  Sender: FDA-Public Use
  Company Number: US-SCIEGEN PHARMACEUTICALS INC-2019SCILIT00268

PATIENT
  Age: 71 Year
  Sex: Female

DRUGS (6)
  1. HYDROCHLOROTHIAZIDE TABLETS [Suspect]
     Active Substance: HYDROCHLOROTHIAZIDE
  2. ATORVASTATIN [Concomitant]
     Active Substance: ATORVASTATIN
  3. MIRTAZAPINE. [Concomitant]
     Active Substance: MIRTAZAPINE
  4. ZOLEDRONIC ACID [Interacting]
     Active Substance: ZOLEDRONIC ACID
  5. CARVEDILOL. [Concomitant]
     Active Substance: CARVEDILOL
  6. LOSARTAN. [Concomitant]
     Active Substance: LOSARTAN

REACTIONS (2)
  - Hypercalcaemia [Recovered/Resolved]
  - Mental status changes [Recovered/Resolved]
